FAERS Safety Report 8444614-0 (Version None)
Quarter: 2012Q2

REPORT INFORMATION
  Report Type: 
  Country: None (occurrence: None)
  Receive Date: 20120618
  Receipt Date: 20120613
  Transmission Date: 20120825
  Serious: Yes (Other)
  Sender: FDA-Public Use
  Company Number: US-PFIZER INC-2012100433

PATIENT
  Sex: Female

DRUGS (1)
  1. FLECTOR [Suspect]
     Indication: PAIN
     Dosage: ONCE A DAY
     Route: 061
     Dates: start: 20120422

REACTIONS (8)
  - FALL [None]
  - MALAISE [None]
  - HEAD INJURY [None]
  - FEELING ABNORMAL [None]
  - MEMORY IMPAIRMENT [None]
  - DIZZINESS [None]
  - HYPOTENSION [None]
  - CONTUSION [None]
